FAERS Safety Report 6962477-7 (Version None)
Quarter: 2010Q3

REPORT INFORMATION
  Report Type: 
  Country: None (occurrence: None)
  Receive Date: 20100902
  Receipt Date: 20100823
  Transmission Date: 20110219
  Serious: Yes (Other)
  Sender: FDA-Public Use
  Company Number: GB-PFIZER INC-2010092949

PATIENT
  Age: 84 Year
  Sex: Male
  Weight: 80 kg

DRUGS (6)
  1. PHENYTOIN SODIUM CAP [Suspect]
     Indication: CONVULSION PROPHYLAXIS
     Dosage: 300 MG, 1X/DAY
     Route: 048
     Dates: start: 20100608, end: 20100723
  2. AMIKACIN [Concomitant]
     Indication: NOCARDIOSIS
     Dosage: 600 MG, 1X/DAY
     Route: 042
     Dates: start: 20100625, end: 20100806
  3. MEROPENEM [Concomitant]
     Indication: NOCARDIOSIS
     Dosage: 2000 MG, 3X/DAY
     Route: 042
     Dates: start: 20100625, end: 20100806
  4. MESALAZINE [Concomitant]
     Dosage: 800 MG, 3X/DAY
     Route: 048
  5. CITALOPRAM [Concomitant]
     Dosage: 20 MG, 1X/DAY
     Route: 048
  6. PREDNISOLONE [Concomitant]
     Dosage: 5 MG, 1X/DAY
     Route: 048

REACTIONS (1)
  - BLOOD PHOSPHORUS DECREASED [None]
